FAERS Safety Report 15168212 (Version 2)
Quarter: 2018Q3

REPORT INFORMATION
  Report Type: Report from Study
  Country: US (occurrence: US)
  Receive Date: 20180719
  Receipt Date: 20180731
  Transmission Date: 20181010
  Serious: Yes (Hospitalization)
  Sender: FDA-Public Use
  Company Number: US-MALLINCKRODT-T201802934

PATIENT
  Age: 52 Year
  Sex: Female
  Weight: 72 kg

DRUGS (24)
  1. HYDROCODONE BITARTRATE AND ACETAMINOPHEN [Concomitant]
     Active Substance: ACETAMINOPHEN\HYDROCODONE BITARTRATE
     Indication: PROCEDURAL PAIN
     Dosage: 10 MG/325 MG AS NEEDED
     Route: 048
     Dates: start: 20180615, end: 20180617
  2. ROXICODONE [Suspect]
     Active Substance: OXYCODONE HYDROCHLORIDE
     Indication: PROCEDURAL PAIN
     Dosage: 20 MG, Q3H (PRN)
     Route: 048
     Dates: start: 20180618, end: 20180618
  3. ROXICODONE [Suspect]
     Active Substance: OXYCODONE HYDROCHLORIDE
     Dosage: 20 MG, Q3H (PRN)
     Route: 048
     Dates: start: 20180620, end: 20180620
  4. ROXICODONE [Suspect]
     Active Substance: OXYCODONE HYDROCHLORIDE
     Dosage: 20 MG, Q3H (PRN)
     Route: 048
     Dates: start: 20180621, end: 20180621
  5. ROXICODONE [Suspect]
     Active Substance: OXYCODONE HYDROCHLORIDE
     Dosage: 10 MG, Q4H  (PRN)
     Route: 048
     Dates: start: 20180622, end: 20180622
  6. ROXICODONE [Suspect]
     Active Substance: OXYCODONE HYDROCHLORIDE
     Dosage: 10 MG, Q3H  (PRN)
     Route: 048
     Dates: start: 20180622
  7. ROXICODONE [Suspect]
     Active Substance: OXYCODONE HYDROCHLORIDE
     Dosage: 20 MG, Q3H (PRN)
     Route: 048
     Dates: start: 20180619, end: 20180619
  8. PF?06290510 OR PLACEBO [Suspect]
     Active Substance: INVESTIGATIONAL PRODUCT
     Indication: IMMUNISATION
     Dosage: SINGLE DOSE (320 MCG/VIAL)
     Route: 030
     Dates: start: 20180601, end: 20180601
  9. HYDROMORPHONE [Concomitant]
     Active Substance: HYDROMORPHONE
     Indication: PROCEDURAL PAIN
     Dosage: 0.25 MG AS NEEDED (2 MG TOTAL DOSE GIVEN)
     Route: 042
     Dates: start: 20180615, end: 20180615
  10. ROXICODONE [Suspect]
     Active Substance: OXYCODONE HYDROCHLORIDE
     Dosage: 20 MG, Q3H (PRN)
     Route: 048
     Dates: start: 20180619, end: 20180619
  11. ROXICODONE [Suspect]
     Active Substance: OXYCODONE HYDROCHLORIDE
     Dosage: 10 MG, Q4H  (PRN)
     Route: 048
     Dates: start: 20180621, end: 20180621
  12. ROXICODONE [Suspect]
     Active Substance: OXYCODONE HYDROCHLORIDE
     Dosage: 10 MG, Q4H  (PRN)
     Route: 048
     Dates: start: 20180621, end: 20180621
  13. ROXICODONE [Suspect]
     Active Substance: OXYCODONE HYDROCHLORIDE
     Dosage: 10 MG, Q4H  (PRN)
     Route: 048
     Dates: start: 20180622, end: 20180622
  14. HYDROMORPHONE [Concomitant]
     Active Substance: HYDROMORPHONE
     Dosage: 0.2 MG,
     Route: 042
     Dates: start: 20180615, end: 20180616
  15. ROXICODONE [Suspect]
     Active Substance: OXYCODONE HYDROCHLORIDE
     Dosage: 20 MG, Q3H (PRN)
     Route: 048
     Dates: start: 20180620, end: 20180620
  16. ROXICODONE [Suspect]
     Active Substance: OXYCODONE HYDROCHLORIDE
     Dosage: 20 MG, Q3H (PRN)
     Route: 048
     Dates: start: 20180620, end: 20180620
  17. ROXICODONE [Suspect]
     Active Substance: OXYCODONE HYDROCHLORIDE
     Dosage: 10 MG, Q4H  (PRN)
     Route: 048
     Dates: start: 20180621, end: 20180621
  18. HYDROMORPHONE [Concomitant]
     Active Substance: HYDROMORPHONE
     Dosage: PCA DEMAND DOSE, ORAL 6 (AS REPORTED)
     Route: 048
  19. ROXICODONE [Suspect]
     Active Substance: OXYCODONE HYDROCHLORIDE
     Dosage: 10 MG, Q4H  (PRN)
     Route: 048
     Dates: start: 20180621, end: 20180621
  20. ROXICODONE [Suspect]
     Active Substance: OXYCODONE HYDROCHLORIDE
     Dosage: 10 MG, Q4H  (PRN)
     Route: 048
     Dates: start: 20180622, end: 20180622
  21. ROXICODONE [Suspect]
     Active Substance: OXYCODONE HYDROCHLORIDE
     Dosage: 10 MG, Q4H  (PRN)
     Route: 048
     Dates: start: 20180622, end: 20180622
  22. ALPRAZOLAM. [Concomitant]
     Active Substance: ALPRAZOLAM
     Indication: ANXIETY
     Dosage: 0.25 MG, BID
     Route: 048
     Dates: start: 20180614
  23. VALSARTAN AND HYDROCHLOROTHIAZIDE [Concomitant]
     Active Substance: HYDROCHLOROTHIAZIDE\VALSARTAN
     Indication: HYPERTENSION
     Dosage: 25 MG, 1X/DAY
     Route: 048
  24. OXYCODONE AND ACETAMINOPHEN [Concomitant]
     Active Substance: ACETAMINOPHEN\OXYCODONE HYDROCHLORIDE
     Indication: PROCEDURAL PAIN
     Dosage: 10 MG/ 325 MG, Q4H
     Route: 065
     Dates: start: 20180617

REACTIONS (1)
  - Postoperative ileus [Recovered/Resolved with Sequelae]

NARRATIVE: CASE EVENT DATE: 20180619
